FAERS Safety Report 25277096 (Version 2)
Quarter: 2025Q2

REPORT INFORMATION
  Report Type: Spontaneous
  Country: JP (occurrence: JP)
  Receive Date: 20250507
  Receipt Date: 20250520
  Transmission Date: 20250716
  Serious: Yes (Other)
  Sender: TAKEDA
  Company Number: JP-TAKEDA-2025TUS043503

PATIENT
  Age: 93 Year
  Sex: Female

DRUGS (6)
  1. RAMELTEON [Suspect]
     Active Substance: RAMELTEON
     Indication: Insomnia
  2. ASPIRIN [Concomitant]
     Active Substance: ASPIRIN
  3. RABEPRAZOLE [Concomitant]
     Active Substance: RABEPRAZOLE
  4. MAGNESIUM OXIDE [Concomitant]
     Active Substance: MAGNESIUM OXIDE
  5. TENELIGLIPTIN [Concomitant]
     Active Substance: TENELIGLIPTIN
  6. SENNOSIDES [Concomitant]
     Active Substance: SENNOSIDES

REACTIONS (1)
  - Suicide attempt [Recovered/Resolved]

NARRATIVE: CASE EVENT DATE: 20250425
